FAERS Safety Report 6085751-8 (Version None)
Quarter: 2009Q1

REPORT INFORMATION
  Report Type: 
  Country: None (occurrence: None)
  Receive Date: 20090217
  Receipt Date: 20080121
  Transmission Date: 20090719
  Serious: Yes (Hospitalization)
  Sender: FDA-Public Use
  Company Number: MC200700764

PATIENT
  Age: 60 Year
  Sex: Male
  Weight: 83 kg

DRUGS (17)
  1. ANGIOMAX [Suspect]
     Indication: ANTICOAGULANT THERAPY
     Dosage: 12.75 ML, SINGLE,INTRAVENOUS; 29 ML, HR,INTRAVENOUS
     Route: 042
     Dates: start: 20070427, end: 20070427
  2. ANGIOMAX [Suspect]
     Indication: STENT PLACEMENT
     Dosage: 12.75 ML, SINGLE,INTRAVENOUS; 29 ML, HR,INTRAVENOUS
     Route: 042
     Dates: start: 20070427, end: 20070427
  3. ANGIOMAX [Suspect]
     Indication: ANTICOAGULANT THERAPY
     Dosage: 12.75 ML, SINGLE,INTRAVENOUS; 29 ML, HR,INTRAVENOUS
     Route: 042
     Dates: start: 20070427, end: 20070427
  4. ANGIOMAX [Suspect]
     Indication: STENT PLACEMENT
     Dosage: 12.75 ML, SINGLE,INTRAVENOUS; 29 ML, HR,INTRAVENOUS
     Route: 042
     Dates: start: 20070427, end: 20070427
  5. INVESTIGATIONAL DRUG [Suspect]
     Dosage: 6.2 ML, BOLUS,INTRAVENOUS
     Route: 040
     Dates: start: 20070427, end: 20070427
  6. OMEPRAZOLE [Concomitant]
  7. NPH INSULIN [Concomitant]
  8. FENTANYL-100 [Concomitant]
  9. METHADONE HCL [Concomitant]
  10. LISINOPRIL [Concomitant]
  11. METOPROLOL TARTRATE [Concomitant]
  12. ASPIRIN [Concomitant]
  13. NAPROXEN [Concomitant]
  14. HEPARIN [Concomitant]
  15. EZETIMIBE [Concomitant]
  16. INSULIN, REGULAR (INSULIN) [Concomitant]
  17. SIMVASTATIN [Concomitant]

REACTIONS (1)
  - CHEST DISCOMFORT [None]
